FAERS Safety Report 25224271 (Version 1)
Quarter: 2025Q2

REPORT INFORMATION
  Report Type: Spontaneous
  Country: CH (occurrence: CH)
  Receive Date: 20250422
  Receipt Date: 20250422
  Transmission Date: 20250716
  Serious: Yes (Hospitalization, Other)
  Sender: ALEXION PHARMACEUTICALS
  Company Number: None

PATIENT
  Age: 88 Year

DRUGS (8)
  1. DAPAGLIFLOZIN [Suspect]
     Active Substance: DAPAGLIFLOZIN
     Route: 065
  2. AMOXICILLIN [Suspect]
     Active Substance: AMOXICILLIN
     Indication: Infected gouty tophus
     Route: 065
  3. CORDARONE [Suspect]
     Active Substance: AMIODARONE HYDROCHLORIDE
     Route: 065
  4. ELIQUIS [Suspect]
     Active Substance: APIXABAN
     Route: 065
  5. TAMSULOSIN HYDROCHLORIDE [Concomitant]
     Active Substance: TAMSULOSIN HYDROCHLORIDE
  6. SODIUM CHONDROITIN SULFATE [Concomitant]
     Active Substance: SODIUM CHONDROITIN SULFATE
  7. EDARBI [Concomitant]
     Active Substance: AZILSARTAN KAMEDOXOMIL
  8. SERENOA REPENS WHOLE [Concomitant]
     Active Substance: SERENOA REPENS WHOLE

REACTIONS (2)
  - Cutaneous vasculitis [Recovering/Resolving]
  - Tubulointerstitial nephritis [Recovering/Resolving]
